FAERS Safety Report 5113853-9 (Version None)
Quarter: 2006Q3

REPORT INFORMATION
  Report Type: 
  Country: None (occurrence: None)
  Receive Date: 20060925
  Receipt Date: 20060913
  Transmission Date: 20061208
  Serious: Yes (Death)
  Sender: FDA-Public Use
  Company Number: AU-ROCHE-462947

PATIENT
  Age: 68 Year
  Sex: Female

DRUGS (3)
  1. CAPECITABINE [Suspect]
     Dosage: GIVEN IN 2 DIVIDED DOSES ON DAYS 1-14 EVERY 3 WEEKS DOSE ROUTE AND FREQUENCY AS PER PROTOCOL.
     Route: 048
     Dates: start: 20060609
  2. AVASTIN [Suspect]
     Dosage: DOSE RPUTE AND FREQUENCY AS PER PROTOCOL
     Route: 042
     Dates: start: 20060609
  3. MITOMYCIN [Suspect]
     Dosage: DOSE ROUTE AND FREQUENCY AS PER PROTOCOL
     Route: 042
     Dates: start: 20060609

REACTIONS (3)
  - LOSS OF CONSCIOUSNESS [None]
  - PULMONARY EMBOLISM [None]
  - RESPIRATORY ARREST [None]
